FAERS Safety Report 8968096 (Version 2)
Quarter: 2013Q1

REPORT INFORMATION
  Report Type: Spontaneous
  Country: US (occurrence: None)
  Receive Date: 20121207
  Receipt Date: 20121218
  Transmission Date: 20140127
  Serious: Yes (Life-Threatening, Hospitalization)
  Sender: FDA-Public Use
  Company Number: ACO_33117_2012

PATIENT
  Age: 41 Year
  Sex: Female
  Weight: 77.1 kg

DRUGS (13)
  1. DALFAMPRIDINE [Suspect]
     Indication: SENSORIMOTOR DISORDER
     Route: 048
     Dates: start: 20121025, end: 20121122
  2. NEURONTIN [Concomitant]
  3. TRAMADOL (TRAMADOL HYDROCHLORIDE) [Concomitant]
  4. IBUPROFEN (IBUPROFEN) [Concomitant]
  5. MICARDIS (TELMISARTAN) [Concomitant]
  6. AMLODIPINE (AMLODIPINE BESILATE) [Concomitant]
  7. HYDROCHLOROTHIAZIDE (HYDROCHLOROTHIAZIDE) [Concomitant]
  8. SEROQUEL (QUETIAPINE FUMARATE) [Concomitant]
  9. HYDROCODONE (HYDROCODONE BITARTRATE) [Concomitant]
  10. ACETAMINOPHEN (PARACETAMOL) [Concomitant]
  11. FERROUS SULFTE (FERROUS SULFATE) [Concomitant]
  12. CRESTOR (ROSUVASTATIN CALCIUM) [Concomitant]
  13. TRAZODONE HCL (TRAZODONE HYDROCHLORIDE) [Concomitant]

REACTIONS (21)
  - Convulsion [None]
  - Inadequate analgesia [None]
  - Thinking abnormal [None]
  - Screaming [None]
  - Factitious disorder [None]
  - Suicidal ideation [None]
  - Psychotic disorder [None]
  - Agitation [None]
  - Loss of consciousness [None]
  - Encephalomalacia [None]
  - Drug screen positive [None]
  - Haemoglobin decreased [None]
  - Postictal state [None]
  - Hypokalaemia [None]
  - Hypomagnesaemia [None]
  - Slow speech [None]
  - Convulsion [None]
  - Suicide attempt [None]
  - Intentional overdose [None]
  - Depressed mood [None]
  - Family stress [None]
